FAERS Safety Report 7022438-9 (Version None)
Quarter: 2010Q3

REPORT INFORMATION
  Report Type: 
  Country: None (occurrence: None)
  Receive Date: 20100930
  Receipt Date: 20100921
  Transmission Date: 20110219
  Serious: Yes (Hospitalization)
  Sender: FDA-Public Use
  Company Number: US-ELI_LILLY_AND_COMPANY-US201007006158

PATIENT
  Age: 66 Year
  Sex: Male
  Weight: 48.798 kg

DRUGS (15)
  1. GEMCITABINE HCL [Suspect]
     Indication: PANCREATIC CARCINOMA
     Dosage: 1560 MG, OTHER
     Route: 042
     Dates: start: 20100304
  2. TARCEVA [Suspect]
     Indication: PANCREATIC CARCINOMA
     Dosage: 100 MG, DAILY (1/D)
     Route: 048
     Dates: start: 20100304, end: 20100624
  3. PACLITAXEL [Suspect]
     Indication: PANCREATIC CARCINOMA
     Dosage: 260 MG, OTHER
     Route: 042
     Dates: start: 20100304, end: 20100611
  4. ATENOLOL [Concomitant]
  5. PRAVASTATIN [Concomitant]
  6. ASPIRIN [Concomitant]
  7. MULTI-VITAMIN [Concomitant]
  8. XANAX [Concomitant]
  9. OXYCODONE [Concomitant]
  10. CLEOCIN [Concomitant]
  11. ZOFRAN [Concomitant]
  12. COMPAZINE [Concomitant]
  13. HYDROCORTISONE [Concomitant]
  14. TETRACYCLINE [Concomitant]
  15. SENOKOT [Concomitant]

REACTIONS (7)
  - ANAEMIA [None]
  - DECREASED APPETITE [None]
  - DEHYDRATION [None]
  - DIARRHOEA [None]
  - DYSPNOEA [None]
  - FATIGUE [None]
  - NAUSEA [None]
